FAERS Safety Report 10138071 (Version 4)
Quarter: 2016Q1

REPORT INFORMATION
  Report Type: Report from Study
  Country: CN (occurrence: CN)
  Receive Date: 20140429
  Receipt Date: 20160120
  Transmission Date: 20160525
  Serious: Yes (Other)
  Sender: FDA-Public Use
  Company Number: PHHY2014CN051221

PATIENT
  Age: 47 Year
  Sex: Female

DRUGS (2)
  1. EXFORGE [Suspect]
     Active Substance: AMLODIPINE BESYLATE\VALSARTAN
     Indication: HYPERTENSION
     Dosage: AMLODIPINE 5 MG AND VALSARTAN 80 MG, QD
     Route: 048
     Dates: start: 20131101
  2. EXFORGE [Suspect]
     Active Substance: AMLODIPINE BESYLATE\VALSARTAN
     Dosage: 1 DF, QD (80MG/ 5MG)
     Route: 048
     Dates: start: 20140108

REACTIONS (3)
  - Pruritus [Recovered/Resolved]
  - Palpitations [Recovered/Resolved]
  - Paralysis [Recovered/Resolved]

NARRATIVE: CASE EVENT DATE: 20140315
